FAERS Safety Report 8464938-0 (Version None)
Quarter: 2012Q2

REPORT INFORMATION
  Report Type: 
  Country: None (occurrence: None)
  Receive Date: 20120626
  Receipt Date: 20120619
  Transmission Date: 20120825
  Serious: Yes (Hospitalization, Other)
  Sender: FDA-Public Use
  Company Number: US-JNJFOC-20120413887

PATIENT
  Sex: Female
  Weight: 53.98 kg

DRUGS (20)
  1. BACTROBAN [Concomitant]
     Indication: LACERATION
     Route: 061
  2. ALBUTEROL SULPHATE [Concomitant]
     Indication: DYSPNOEA
     Route: 055
  3. LACTULOSE [Concomitant]
     Indication: CONSTIPATION
     Route: 065
  4. LORTAB [Concomitant]
     Indication: PAIN
     Dosage: AS NEEDED
     Route: 048
  5. PREMARIN [Concomitant]
     Indication: DRY SKIN
     Route: 067
  6. FISH OIL [Concomitant]
     Route: 048
  7. LEVOTHYROXINE SODIUM [Concomitant]
     Indication: HYPOTHYROIDISM
     Route: 065
  8. NEXIUM [Concomitant]
     Indication: GASTRIC DISORDER
     Route: 048
  9. MULTIPLE VITAMIN [Concomitant]
     Route: 065
  10. NITROGLYCERIN [Concomitant]
     Indication: CARDIAC DISORDER
     Route: 061
  11. NITROSTAT [Concomitant]
     Indication: CARDIAC DISORDER
     Route: 048
  12. LOPRESSOR [Concomitant]
     Indication: CARDIAC DISORDER
     Route: 048
  13. CRESTOR [Concomitant]
     Indication: CARDIAC DISORDER
  14. ASPIRIN [Concomitant]
     Route: 065
  15. XANAX [Concomitant]
     Indication: NEUROPATHY PERIPHERAL
     Route: 065
  16. OS-CAL + D [Concomitant]
     Route: 065
  17. LEVAQUIN [Suspect]
     Indication: LOBAR PNEUMONIA
     Dosage: PRESCRIBED FOR 10 DAYS
     Route: 048
     Dates: start: 20110624, end: 20110701
  18. ZOLOFT [Concomitant]
     Indication: DEPRESSION
     Route: 048
  19. VITAMIN B-12 [Concomitant]
     Route: 065
  20. VITAMIN D [Concomitant]
     Dosage: 400 UNITS
     Route: 065

REACTIONS (15)
  - NERVOUS SYSTEM DISORDER [None]
  - FATIGUE [None]
  - ARTHRITIS [None]
  - CARPAL TUNNEL SYNDROME [None]
  - TENDON RUPTURE [None]
  - CYANOSIS [None]
  - TENDONITIS [None]
  - GAIT DISTURBANCE [None]
  - BURSITIS [None]
  - TENDON PAIN [None]
  - BACK PAIN [None]
  - OEDEMA PERIPHERAL [None]
  - BALANCE DISORDER [None]
  - FEELING ABNORMAL [None]
  - HEART RATE IRREGULAR [None]
